APPROVED DRUG PRODUCT: METHYLTESTOSTERONE
Active Ingredient: METHYLTESTOSTERONE
Strength: 25MG
Dosage Form/Route: TABLET;ORAL
Application: A087111 | Product #001
Applicant: LANNETT CO INC
Approved: Jan 27, 1983 | RLD: No | RS: No | Type: DISCN